FAERS Safety Report 7166543-5 (Version None)
Quarter: 2010Q4

REPORT INFORMATION
  Report Type: 
  Country: None (occurrence: None)
  Receive Date: 20101216
  Receipt Date: 20101207
  Transmission Date: 20110411
  Serious: Yes (Hospitalization, Other)
  Sender: FDA-Public Use
  Company Number: PHHY2010US83007

PATIENT
  Sex: Female

DRUGS (1)
  1. TRILEPTAL [Suspect]
     Dosage: UNK

REACTIONS (7)
  - AGGRESSION [None]
  - ALOPECIA [None]
  - ANGER [None]
  - APHAGIA [None]
  - DEPRESSION [None]
  - MALAISE [None]
  - PANIC ATTACK [None]
